FAERS Safety Report 22292575 (Version 1)
Quarter: 2023Q2

REPORT INFORMATION
  Report Type: Report from Study
  Country: US (occurrence: US)
  Receive Date: 20230508
  Receipt Date: 20230508
  Transmission Date: 20230722
  Serious: Yes (Other)
  Sender: FDA-Public Use
  Company Number: US-ABBVIE-4291592

PATIENT
  Age: 66 Year
  Sex: Female
  Weight: 73.481 kg

DRUGS (29)
  1. HUMIRA [Suspect]
     Active Substance: ADALIMUMAB
     Indication: Product used for unknown indication
     Dosage: CF, FORM STRENGTH: 40 MG
     Route: 058
  2. HUMIRA [Suspect]
     Active Substance: ADALIMUMAB
     Indication: Uveitis
     Dosage: CF, FORM STRENGTH: 40 MILLIGRAM
     Route: 058
     Dates: start: 20200721
  3. HUMIRA [Suspect]
     Active Substance: ADALIMUMAB
     Dosage: CF, FORM STRENGTH: 40 MG
     Route: 058
  4. MYCOPHENOLIC ACID [Concomitant]
     Active Substance: MYCOPHENOLIC ACID
     Indication: Product used for unknown indication
  5. BIOTIN [Concomitant]
     Active Substance: BIOTIN
     Indication: Product used for unknown indication
     Route: 048
  6. FINASTERIDE [Concomitant]
     Active Substance: FINASTERIDE
     Indication: Product used for unknown indication
     Dosage: 5 MG
     Route: 048
  7. FLUTICASONE PROPIONATE [Concomitant]
     Active Substance: FLUTICASONE PROPIONATE
     Indication: Product used for unknown indication
     Dosage: 50 MCG/ACTUATION NASAL SPRAY, USE 1 SPRAY NASALLY DAILY
  8. OMEPRAZOLE [Concomitant]
     Active Substance: OMEPRAZOLE
     Indication: Product used for unknown indication
     Dosage: 40 MG, TAKE 1 CAPSULE BY MOUTH DAILY
  9. PREDNISOLONE ACETATE [Concomitant]
     Active Substance: PREDNISOLONE ACETATE
     Indication: Product used for unknown indication
     Dosage: 1% SUSP OPHTHALMIC, ONE DROP ONCE
  10. PROLENSA [Concomitant]
     Active Substance: BROMFENAC SODIUM
     Indication: Product used for unknown indication
     Dosage: 0.07 % SOLN OPTHALMIC SOLUTION, PLACE ONE DROP INTO BOTH EYES DAILY
  11. BLACK CURRANT SEED OIL [Concomitant]
     Indication: Product used for unknown indication
     Route: 048
  12. CHLORTHALIDONE [Concomitant]
     Active Substance: CHLORTHALIDONE
     Indication: Product used for unknown indication
     Dosage: 25 MG
     Route: 048
  13. SIMVASTATIN [Concomitant]
     Active Substance: SIMVASTATIN
     Indication: Product used for unknown indication
     Dosage: 20 MG, TAKE 1 TABLET BY MOUTH AT BEDTIME
  14. VITAMIN E [Concomitant]
     Active Substance: .ALPHA.-TOCOPHEROL
     Indication: Product used for unknown indication
     Dosage: 100 UNIT, TAKE ONE CAPSULE (100 UNITS DOSE) BY MOUTH DAILY
  15. CALCIUM 1200+D3 [Concomitant]
     Indication: Product used for unknown indication
  16. FISH OIL [Concomitant]
     Active Substance: FISH OIL
     Indication: Product used for unknown indication
     Dosage: 1000 MG, TAKE ONE CAPSULE (1,000 MG DOSE) BY MOUTH DAILY
     Route: 048
  17. FLUOROMETHOLONE [Concomitant]
     Active Substance: FLUOROMETHOLONE
     Indication: Product used for unknown indication
     Dosage: 0.1% OPHTHALMIC SUSPENSION, PLACE ONE DROP INTO THE RIGHT EYE 4 (FOUR) TIMES A DAY
  18. FOLIC ACID [Concomitant]
     Active Substance: FOLIC ACID
     Indication: Product used for unknown indication
     Dosage: 1 MG
     Route: 048
  19. CHONDROITIN SULFATE (BOVINE)\GLUCOSAMINE SULFATE [Concomitant]
     Active Substance: CHONDROITIN SULFATE (BOVINE)\GLUCOSAMINE SULFATE
     Indication: Product used for unknown indication
     Dosage: TIME INTERVAL: 0.33333333 DAYS: 500-400 MG PER TABLET
     Route: 048
  20. LIDOCAINE [Concomitant]
     Active Substance: LIDOCAINE
     Indication: Product used for unknown indication
     Dosage: 5%
  21. VITAMIN D3 [Concomitant]
     Active Substance: CHOLECALCIFEROL
     Indication: Product used for unknown indication
     Dosage: 25 MCG (1000 UT), TAKE 1,000 UNITS BY MOUTH DAILY
  22. DORZOLAMIDE\TIMOLOL [Concomitant]
     Active Substance: DORZOLAMIDE\TIMOLOL
     Indication: Product used for unknown indication
     Dosage: 22.3-6.8 MG/ML, PLACE ONE DROP INTO BOTH EYES 2 (TWO) TIMES DAILY, OPHTHALMIC SOLUTION
  23. DORZOLAMIDE\TIMOLOL [Concomitant]
     Active Substance: DORZOLAMIDE\TIMOLOL
     Indication: Product used for unknown indication
     Dosage: 22.3-6.8 MG/ML, PLACE 1 DROP INTO BOTH EYES 2 TIMES DAILY, OPHTHALMIC SOLUTION
  24. LOSARTAN POTASSIUM [Concomitant]
     Active Substance: LOSARTAN POTASSIUM
     Indication: Product used for unknown indication
     Dosage: 50 MG
     Route: 048
  25. LUMIFY [Concomitant]
     Active Substance: BRIMONIDINE TARTRATE
     Indication: Product used for unknown indication
     Dosage: 0.025 % SOLN, APPLY TO EYE
  26. MELATONIN [Concomitant]
     Active Substance: MELATONIN
     Indication: Product used for unknown indication
     Dosage: 3 MG, TAKE ONE TABLET (3 MG DOSE) BY MOUTH DAILY
     Route: 048
  27. VITAMINS [Concomitant]
     Active Substance: VITAMINS
     Indication: Product used for unknown indication
     Dosage: TAKE ONE TABLET BY MOUTH DAILY
  28. MYCOPHENOLATE MOFETIL [Concomitant]
     Active Substance: MYCOPHENOLATE MOFETIL
     Indication: Product used for unknown indication
     Dosage: 500 MG
  29. PROBIOTICS NOS [Concomitant]
     Active Substance: PROBIOTICS NOS
     Indication: Product used for unknown indication
     Route: 048

REACTIONS (21)
  - Thyroid operation [Recovering/Resolving]
  - Breakthrough pain [Unknown]
  - Eye inflammation [Not Recovered/Not Resolved]
  - Arthralgia [Unknown]
  - Rotator cuff syndrome [Unknown]
  - Conjunctivitis allergic [Unknown]
  - Thyroid mass [Unknown]
  - Hot flush [Unknown]
  - Rhinitis allergic [Unknown]
  - Dry eye [Unknown]
  - Gastrooesophageal reflux disease [Unknown]
  - Arthralgia [Unknown]
  - Chorioretinitis [Unknown]
  - Retinal oedema [Unknown]
  - Essential hypertension [Unknown]
  - Varicose vein [Unknown]
  - Rotator cuff syndrome [Unknown]
  - Pseudophakia [Unknown]
  - Uveitis [Unknown]
  - Hyperthyroidism [Unknown]
  - Nasopharyngitis [Unknown]

NARRATIVE: CASE EVENT DATE: 20230308
